FAERS Safety Report 24216814 (Version 1)
Quarter: 2024Q3

REPORT INFORMATION
  Report Type: Spontaneous
  Country: KR (occurrence: None)
  Receive Date: 20240816
  Receipt Date: 20240816
  Transmission Date: 20241016
  Serious: Yes (Death)
  Sender: ASTRAZENECA
  Company Number: 2024A185519

PATIENT
  Age: 54 Year
  Sex: Female

DRUGS (1)
  1. IMFINZI [Suspect]
     Active Substance: DURVALUMAB
     Dosage: 500 MG 9 VIAL

REACTIONS (1)
  - Gallbladder cancer [Fatal]

NARRATIVE: CASE EVENT DATE: 20240313
